FAERS Safety Report 9819871 (Version 2)
Quarter: 2014Q1

REPORT INFORMATION
  Report Type: Spontaneous
  Country: US (occurrence: None)
  Receive Date: 20131223
  Receipt Date: 20140228
  Transmission Date: 20141002
  Serious: No
  Sender: FDA-Public Use
  Company Number: 220926

PATIENT
  Age: 48 Year
  Sex: Female

DRUGS (1)
  1. PICATO (0.015 %, GEL) [Suspect]
     Indication: ACTINIC KERATOSIS
     Route: 061
     Dates: start: 20130308, end: 20130310

REACTIONS (6)
  - Application site pain [None]
  - Application site irritation [None]
  - Application site vesicles [None]
  - Drug administered at inappropriate site [None]
  - Application site nodule [None]
  - Application site erosion [None]
